FAERS Safety Report 11385938 (Version 1)
Quarter: 2015Q3

REPORT INFORMATION
  Report Type: Spontaneous
  Country: US (occurrence: US)
  Receive Date: 20150817
  Receipt Date: 20150817
  Transmission Date: 20151125
  Serious: No
  Sender: FDA-Public Use
  Company Number: US-ASTRAZENECA-2015SE75735

PATIENT
  Age: 3643 Week
  Sex: Female
  Weight: 95.3 kg

DRUGS (1)
  1. BYDUREON [Suspect]
     Active Substance: EXENATIDE
     Indication: ASTHMA
     Dosage: 2 MG 4 COUNT
     Route: 065
     Dates: start: 20150628

REACTIONS (3)
  - Injection site erythema [Not Recovered/Not Resolved]
  - Injection site mass [None]
  - Injection site bruising [Not Recovered/Not Resolved]

NARRATIVE: CASE EVENT DATE: 20150629
